FAERS Safety Report 9685820 (Version 3)
Quarter: 2014Q2

REPORT INFORMATION
  Report Type: Spontaneous
  Country: US (occurrence: US)
  Receive Date: 20131113
  Receipt Date: 20140624
  Transmission Date: 20141212
  Serious: No
  Sender: FDA-Public Use
  Company Number: US-PFIZER INC-2013321338

PATIENT
  Age: 35 Year
  Sex: Female
  Weight: 79.82 kg

DRUGS (4)
  1. XELJANZ [Suspect]
     Indication: RHEUMATOID ARTHRITIS
     Dosage: 5 MG, (TWICE A DAY)
     Route: 048
     Dates: start: 201306
  2. LORTAB [Concomitant]
     Dosage: UNK
  3. METHOTREXATE [Concomitant]
     Dosage: UNK
  4. FOLIC ACID [Concomitant]
     Dosage: UNK

REACTIONS (3)
  - Arthralgia [Unknown]
  - Nasopharyngitis [Unknown]
  - Cystitis [Recovered/Resolved]
